FAERS Safety Report 8604396-6 (Version None)
Quarter: 2012Q3

REPORT INFORMATION
  Report Type: 
  Country: None (occurrence: None)
  Receive Date: 20120806
  Receipt Date: 20120806
  Transmission Date: 20120928
  Serious: No
  Sender: FDA-Public Use
  Company Number: None

PATIENT
  Age: 37 Year
  Sex: Male
  Weight: 112.4921 kg

DRUGS (1)
  1. ADDERALL 15 [Suspect]
     Indication: PSYCHOMOTOR HYPERACTIVITY
     Dosage: 15MG 2 X DAY PO
     Route: 048

REACTIONS (4)
  - SOMNOLENCE [None]
  - DRUG INEFFECTIVE [None]
  - VISION BLURRED [None]
  - PRODUCT SUBSTITUTION ISSUE [None]
